FAERS Safety Report 6140668-5 (Version None)
Quarter: 2009Q1

REPORT INFORMATION
  Report Type: 
  Country: None (occurrence: None)
  Receive Date: 20090331
  Receipt Date: 20090327
  Transmission Date: 20090719
  Serious: Yes (Hospitalization)
  Sender: FDA-Public Use
  Company Number: GRT 2005-10214

PATIENT
  Age: 77 Year
  Sex: Female
  Weight: 42 kg

DRUGS (13)
  1. LIDOCAINE [Suspect]
     Indication: NEURALGIA
     Dosage: 2 PATCHES A DAY
     Dates: start: 20040427
  2. ERGOTAMINE TARTARATE W/CAFFEINE [Concomitant]
  3. CARBAMAZEPINE [Concomitant]
  4. GABAPENTIN [Concomitant]
  5. MIANSERIN HYDROCHLORIDE [Concomitant]
  6. BROMAZEPAM [Concomitant]
  7. POTASSIUM CHLORIDE [Concomitant]
  8. TRIMETAZIDINE [Concomitant]
  9. RAMIPRIL [Concomitant]
  10. MAGNESIUM LACTATE [Concomitant]
  11. PYRIDOXINE HYDROCHLORIDE [Concomitant]
  12. HYDROXYZINE HYDROCHLORIDE [Concomitant]
  13. METOPROLOL TARTRATE [Concomitant]

REACTIONS (12)
  - ALTERED STATE OF CONSCIOUSNESS [None]
  - ARRHYTHMIA SUPRAVENTRICULAR [None]
  - CARDIOMEGALY [None]
  - CORONARY ARTERY DISEASE [None]
  - MALAISE [None]
  - PNEUMOTHORAX [None]
  - PROCEDURAL COMPLICATION [None]
  - SICK SINUS SYNDROME [None]
  - SUBCUTANEOUS EMPHYSEMA [None]
  - TACHYCARDIA [None]
  - URINARY TRACT INFECTION [None]
  - VENTRICULAR ARRHYTHMIA [None]
